FAERS Safety Report 19082475 (Version 4)
Quarter: 2021Q2

REPORT INFORMATION
  Report Type: Report from Study
  Country: US (occurrence: US)
  Receive Date: 20210401
  Receipt Date: 20210618
  Transmission Date: 20210717
  Serious: Yes (Death, Hospitalization, Other)
  Sender: FDA-Public Use
  Company Number: NVSC2021US069033

PATIENT
  Age: 84 Year
  Sex: Female
  Weight: 72.5 kg

DRUGS (1)
  1. COSENTYX [Suspect]
     Active Substance: SECUKINUMAB
     Indication: PSORIASIS
     Dosage: 300 MG, QW (LOADING PHASE)
     Route: 058
     Dates: start: 20210125

REACTIONS (3)
  - Fall [Unknown]
  - Cerebrovascular accident [Fatal]
  - Aortic occlusion [Fatal]

NARRATIVE: CASE EVENT DATE: 20210319
